FAERS Safety Report 8008586-5 (Version None)
Quarter: 2011Q4

REPORT INFORMATION
  Report Type: 
  Country: None (occurrence: None)
  Receive Date: 20111227
  Receipt Date: 20111222
  Transmission Date: 20120403
  Serious: Yes (Life-Threatening, Hospitalization, Other)
  Sender: FDA-Public Use
  Company Number: AU-ASTRAZENECA-2011SE70239

PATIENT
  Age: 6520 Day
  Sex: Male

DRUGS (5)
  1. SEROQUEL [Suspect]
     Dosage: PATIENT TOOK FOUR TABLETS OF SEROQUEL
     Route: 048
  2. SEROQUEL [Suspect]
     Indication: AFFECTIVE DISORDER
     Route: 048
  3. SEROQUEL [Suspect]
     Indication: BIPOLAR DISORDER
     Route: 048
  4. SEROQUEL [Suspect]
     Dosage: PATIENT TOOK FOUR TABLETS OF SEROQUEL
     Route: 048
  5. LITHIUM CARBONATE [Suspect]
     Route: 048

REACTIONS (2)
  - OVERDOSE [None]
  - SUICIDE ATTEMPT [None]
